FAERS Safety Report 11992392 (Version 2)
Quarter: 2016Q1

REPORT INFORMATION
  Report Type: Spontaneous
  Country: IT (occurrence: IT)
  Receive Date: 20160203
  Receipt Date: 20160205
  Transmission Date: 20160526
  Serious: Yes (Hospitalization)
  Sender: FDA-Public Use
  Company Number: IT-ROCHE-1704890

PATIENT
  Age: 44 Year
  Sex: Female

DRUGS (6)
  1. FOLINA (ITALY) [Concomitant]
     Dosage: 20 CAPSULES
     Route: 048
  2. RIBAVIRIN. [Suspect]
     Active Substance: RIBAVIRIN
     Indication: CHRONIC HEPATITIS C
     Route: 048
     Dates: start: 20150313, end: 20150827
  3. VIEKIRAX [Suspect]
     Active Substance: OMBITASVIR\PARITAPREVIR\RITONAVIR
     Indication: CHRONIC HEPATITIS C
     Dosage: 12.5 MG / 75 MG / 50 MG FILM-COATED TABLET
     Route: 048
     Dates: start: 20150313, end: 20150827
  4. EXVIERA [Suspect]
     Active Substance: DASABUVIR
     Indication: CHRONIC HEPATITIS C
     Route: 048
     Dates: start: 20150313, end: 20150827
  5. OMEPRAZOLE. [Concomitant]
     Active Substance: OMEPRAZOLE
  6. NEORECORMON [Concomitant]
     Active Substance: ERYTHROPOIETIN
     Dosage: 1 PRE-FILLED SYRINGE CONTAINING 30,000 IU
     Route: 065

REACTIONS (1)
  - Subarachnoid haemorrhage [Recovered/Resolved with Sequelae]

NARRATIVE: CASE EVENT DATE: 20150901
